FAERS Safety Report 8381244-3 (Version None)
Quarter: 2012Q2

REPORT INFORMATION
  Report Type: 
  Country: None (occurrence: None)
  Receive Date: 20120523
  Receipt Date: 20120516
  Transmission Date: 20120825
  Serious: Yes (Hospitalization, Other)
  Sender: FDA-Public Use
  Company Number: US-US-EMD SERONO, INC.-7133722

PATIENT
  Sex: Male
  Weight: 38 kg

DRUGS (15)
  1. LEVOTHYROXINE SODIUM [Concomitant]
     Indication: PRODUCT USED FOR UNKNOWN INDICATION
  2. ORGANIC 15 [Concomitant]
     Indication: PRODUCT USED FOR UNKNOWN INDICATION
  3. SAIZEN [Suspect]
     Indication: BODY HEIGHT BELOW NORMAL
  4. CITALOPRAM [Concomitant]
     Indication: PRODUCT USED FOR UNKNOWN INDICATION
  5. SUPER EFF [Concomitant]
     Indication: PRODUCT USED FOR UNKNOWN INDICATION
  6. BIO-GGG-B [Concomitant]
     Indication: PRODUCT USED FOR UNKNOWN INDICATION
  7. CATAPLEX G [Concomitant]
     Indication: PRODUCT USED FOR UNKNOWN INDICATION
  8. RISPERIDONE [Concomitant]
     Indication: PRODUCT USED FOR UNKNOWN INDICATION
  9. LORAZEPAM [Concomitant]
     Indication: PRODUCT USED FOR UNKNOWN INDICATION
  10. ATRI-ALOE V [Concomitant]
     Indication: PRODUCT USED FOR UNKNOWN INDICATION
  11. VITAMIN D [Concomitant]
     Indication: PRODUCT USED FOR UNKNOWN INDICATION
  12. LY-ZYME FORTE [Concomitant]
     Indication: PRODUCT USED FOR UNKNOWN INDICATION
  13. ORGANIX [Concomitant]
     Indication: PRODUCT USED FOR UNKNOWN INDICATION
  14. OMEGA SWIRL [Concomitant]
     Indication: PRODUCT USED FOR UNKNOWN INDICATION
  15. MULTIVITAMIN WITH IRON [Concomitant]
     Indication: PRODUCT USED FOR UNKNOWN INDICATION

REACTIONS (3)
  - TIC [None]
  - OBSESSIVE-COMPULSIVE DISORDER [None]
  - CONSTIPATION [None]
